FAERS Safety Report 12616272 (Version 5)
Quarter: 2017Q2

REPORT INFORMATION
  Report Type: Report from Study
  Country: None (occurrence: CL)
  Receive Date: 20160802
  Receipt Date: 20170607
  Transmission Date: 20170830
  Serious: Yes (Other)
  Sender: FDA-Public Use
  Company Number: CL-ABBVIE-16K-034-1635786-00

PATIENT
  Age: 13 Year
  Sex: Female

DRUGS (4)
  1. NASONEX [Concomitant]
     Active Substance: MOMETASONE FUROATE
     Indication: PRODUCT USED FOR UNKNOWN INDICATION
     Dosage: 1 PUFF PER NOSTRIL AT MORNING AND AT NIGHT
     Dates: start: 201607
  2. ZIVAL [Concomitant]
     Indication: PRODUCT USED FOR UNKNOWN INDICATION
     Dates: start: 201607
  3. SINGULAIR [Concomitant]
     Active Substance: MONTELUKAST SODIUM
     Indication: PRODUCT USED FOR UNKNOWN INDICATION
     Dates: start: 201607
  4. HUMIRA [Suspect]
     Active Substance: ADALIMUMAB
     Indication: PSORIASIS
     Route: 058
     Dates: start: 20141020, end: 20160716

REACTIONS (9)
  - Rhinitis allergic [Recovered/Resolved]
  - Stress [Unknown]
  - Viral upper respiratory tract infection [Not Recovered/Not Resolved]
  - Adenoidal hypertrophy [Recovering/Resolving]
  - Psoriasis [Not Recovered/Not Resolved]
  - Lymphocyte count increased [Not Recovered/Not Resolved]
  - Tonsillar hypertrophy [Recovering/Resolving]
  - Pharyngeal cyst [Not Recovered/Not Resolved]
  - Bronchitis [Not Recovered/Not Resolved]

NARRATIVE: CASE EVENT DATE: 201604
